FAERS Safety Report 16213782 (Version 2)
Quarter: 2019Q2

REPORT INFORMATION
  Report Type: Report from Study
  Country: ZA (occurrence: ZA)
  Receive Date: 20190418
  Receipt Date: 20190521
  Transmission Date: 20190711
  Serious: Yes (Other)
  Sender: FDA-Public Use
  Company Number: ZA-SA-2019SA031828

PATIENT
  Age: 50 Year
  Sex: Female

DRUGS (4)
  1. CARLOC [Concomitant]
     Active Substance: CARVEDILOL
     Dosage: 25 MG, QD, BEFORE BREAKFAST
     Route: 065
     Dates: start: 20180101
  2. COVERAM [Concomitant]
     Active Substance: AMLODIPINE\PERINDOPRIL
     Dosage: 10 MG, QD, BEFORE BREAKFAST
     Route: 065
     Dates: start: 20190101
  3. OPTISULIN (INSULIN GLARGINE) [Suspect]
     Active Substance: INSULIN GLARGINE
     Dosage: 14 U, BID, 14 UNITS BEFORE SUPPER AND 14 UNITS BEFORE BREAKFAST
     Dates: start: 20190124
  4. GLUCOPHAGE [Concomitant]
     Active Substance: METFORMIN HYDROCHLORIDE
     Dosage: 850 MG, BID, 850 MG BEFORE SUPPER AND 850 MG BEFORE BREAKFAST
     Route: 065
     Dates: start: 20190101

REACTIONS (5)
  - Glycosylated haemoglobin increased [Unknown]
  - Myalgia [Not Recovered/Not Resolved]
  - Inappropriate schedule of product administration [Unknown]
  - Tooth abscess [Recovered/Resolved]
  - Blood glucose increased [Recovered/Resolved]

NARRATIVE: CASE EVENT DATE: 20181203
